FAERS Safety Report 5771319-7 (Version None)
Quarter: 2008Q2

REPORT INFORMATION
  Report Type: 
  Country: None (occurrence: None)
  Receive Date: 20080613
  Receipt Date: 20080609
  Transmission Date: 20081010
  Serious: Yes (Hospitalization)
  Sender: FDA-Public Use
  Company Number: FR-WYE-G01659808

PATIENT
  Sex: Male
  Weight: 22 kg

DRUGS (1)
  1. ADVIL [Suspect]
     Indication: FEBRILE INFECTION
     Dosage: UNKNOWN
     Route: 048
     Dates: start: 20051101, end: 20051101

REACTIONS (1)
  - EYELID OEDEMA [None]
